FAERS Safety Report 16206084 (Version 1)
Quarter: 2019Q2

REPORT INFORMATION
  Report Type: Spontaneous
  Country: US (occurrence: US)
  Receive Date: 20190416
  Receipt Date: 20190416
  Transmission Date: 20190711
  Serious: Yes (Life-Threatening, Hospitalization)
  Sender: FDA-Public Use
  Company Number: None

PATIENT
  Age: 42 Year
  Sex: Female
  Weight: 98 kg

DRUGS (1)
  1. INVOKAMET [Suspect]
     Active Substance: CANAGLIFLOZIN\METFORMIN HYDROCHLORIDE
     Indication: TYPE 2 DIABETES MELLITUS
     Route: 048
     Dates: start: 20181013, end: 20190320

REACTIONS (8)
  - Metabolic acidosis [None]
  - Vomiting [None]
  - Abdominal pain [None]
  - Haemodialysis [None]
  - Diabetic ketoacidosis [None]
  - Tachypnoea [None]
  - Mental status changes [None]
  - Nausea [None]

NARRATIVE: CASE EVENT DATE: 20190320
